FAERS Safety Report 12490883 (Version 1)
Quarter: 2016Q2

REPORT INFORMATION
  Report Type: Spontaneous
  Country: US (occurrence: US)
  Receive Date: 20160623
  Receipt Date: 20160623
  Transmission Date: 20160815
  Serious: Yes (Other)
  Sender: FDA-Public Use
  Company Number: US-ASTRAZENECA-2016SE68467

PATIENT
  Sex: Male

DRUGS (11)
  1. LOPRESSOR [Concomitant]
     Active Substance: METOPROLOL TARTRATE
  2. CALAN SR [Concomitant]
     Active Substance: VERAPAMIL HYDROCHLORIDE
  3. METAMUCIL [Concomitant]
     Active Substance: PLANTAGO SEED
  4. CALAN SR [Suspect]
     Active Substance: VERAPAMIL HYDROCHLORIDE
     Route: 065
  5. DELTASONE [Concomitant]
     Active Substance: PREDNISONE
  6. BICALUTAMIDE. [Suspect]
     Active Substance: BICALUTAMIDE
     Route: 048
  7. ZYTIGA [Concomitant]
     Active Substance: ABIRATERONE ACETATE
  8. HYDRODIURIL [Concomitant]
     Active Substance: HYDROCHLOROTHIAZIDE
  9. OLAPARIB [Suspect]
     Active Substance: OLAPARIB
     Route: 048
  10. LUPRON [Concomitant]
     Active Substance: LEUPROLIDE ACETATE
  11. ASPIRIN. [Concomitant]
     Active Substance: ASPIRIN

REACTIONS (2)
  - Prostatic specific antigen abnormal [Unknown]
  - Off label use [Unknown]
